FAERS Safety Report 6712774-5 (Version None)
Quarter: 2010Q2

REPORT INFORMATION
  Report Type: 
  Country: None (occurrence: None)
  Receive Date: 20100505
  Receipt Date: 20100505
  Transmission Date: 20101027
  Serious: Yes (Other)
  Sender: FDA-Public Use
  Company Number: None

PATIENT
  Age: 22 Year
  Sex: Female
  Weight: 56.8 kg

DRUGS (2)
  1. LEVONORGESTREL [Suspect]
     Indication: CONTRACEPTION
     Dosage: LEVO 0.75 MG 8 PM; PO SAME 12 HOURS LATER PO
     Route: 048
     Dates: start: 20100420
  2. LEVONORGESTREL [Suspect]
     Indication: CONTRACEPTION
     Dosage: LEVO 0.75 MG 8 PM; PO SAME 12 HOURS LATER PO
     Route: 048
     Dates: start: 20100421

REACTIONS (9)
  - ANXIETY [None]
  - CHILLS [None]
  - DYSPNOEA [None]
  - FEAR [None]
  - FEELING ABNORMAL [None]
  - FLUSHING [None]
  - HYPERHIDROSIS [None]
  - SOCIAL AVOIDANT BEHAVIOUR [None]
  - TREMOR [None]
